FAERS Safety Report 23328316 (Version 1)
Quarter: 2023Q4

REPORT INFORMATION
  Report Type: Spontaneous
  Country: US (occurrence: US)
  Receive Date: 20231221
  Receipt Date: 20231221
  Transmission Date: 20240109
  Serious: No
  Sender: FDA-Public Use
  Company Number: US-GALDERMA-US2023015608

PATIENT

DRUGS (5)
  1. PROACTIV MD ADAPALENE ACNE TREATMENT [Suspect]
     Active Substance: ADAPALENE
     Indication: Skin hyperpigmentation
     Dosage: 1 DOSAGE FORM, BID
     Route: 061
     Dates: start: 202309, end: 202309
  2. Proactiv MD Ultra Gentle Cleanser [Concomitant]
     Indication: Skin hyperpigmentation
     Dosage: 1 DOSAGE FORM, BID
     Route: 061
     Dates: start: 202309, end: 202309
  3. Proactiv MD Ultra Hydrating Moisturizer [Concomitant]
     Indication: Skin hyperpigmentation
     Dosage: 1 DOSAGE FORM, BID
     Route: 061
     Dates: start: 202309, end: 202309
  4. COSMETICS [Concomitant]
     Active Substance: COSMETICS
     Indication: Skin hyperpigmentation
     Dosage: 1 DOSAGE FORM, BID
     Route: 061
     Dates: start: 202309, end: 202309
  5. COSMETICS [Concomitant]
     Active Substance: COSMETICS
     Indication: Skin hyperpigmentation
     Dosage: 1 DOSAGE FORM, BID
     Route: 061
     Dates: start: 202309, end: 202309

REACTIONS (4)
  - Skin burning sensation [Recovered/Resolved]
  - Product use in unapproved indication [Recovered/Resolved]
  - Overdose [Recovered/Resolved]
  - Inappropriate schedule of product administration [Recovered/Resolved]

NARRATIVE: CASE EVENT DATE: 20230901
